FAERS Safety Report 13581171 (Version 8)
Quarter: 2018Q2

REPORT INFORMATION
  Report Type: Spontaneous
  Country: US (occurrence: US)
  Receive Date: 20170525
  Receipt Date: 20180531
  Transmission Date: 20180711
  Serious: No
  Sender: FDA-Public Use
  Company Number: US-GLAXOSMITHKLINE-US2017GSK078313

PATIENT
  Sex: Female

DRUGS (8)
  1. FLOLAN [Suspect]
     Active Substance: EPOPROSTENOL SODIUM
     Indication: PULMONARY ARTERIAL HYPERTENSION
     Dosage: 8.87 DF, CO
     Route: 042
     Dates: start: 20170519
  2. FLOLAN DILUENT SOLUTION FOR INJECTION [Concomitant]
     Active Substance: GLYCINE\MANNITOL\SODIUM CHLORIDE
  3. FLOLAN [Suspect]
     Active Substance: EPOPROSTENOL SODIUM
     Dosage: 19.06 DF, CO
  4. FLOLAN DILUENT PH 12 SOLUTION FOR INJECTION [Suspect]
     Active Substance: GLYCINE\MANNITOL\SODIUM CHLORIDE
     Indication: PULMONARY HYPERTENSION
     Dosage: UNK
     Dates: start: 20170519
  5. FLOLAN DILUENT PH 12 SOLUTION FOR INJECTION [Suspect]
     Active Substance: GLYCINE\MANNITOL\SODIUM CHLORIDE
     Dosage: UNK
  6. FLOLAN [Suspect]
     Active Substance: EPOPROSTENOL SODIUM
     Indication: PULMONARY HYPERTENSION
     Dosage: 8.87 DF, CO
     Route: 042
     Dates: start: 20170519
  7. FLOLAN [Suspect]
     Active Substance: EPOPROSTENOL SODIUM
     Dosage: 28.4 DF, CO
  8. FLOLAN DILUENT PH 12 SOLUTION FOR INJECTION [Suspect]
     Active Substance: GLYCINE\MANNITOL\SODIUM CHLORIDE
     Indication: PULMONARY ARTERIAL HYPERTENSION
     Dosage: UNK

REACTIONS (13)
  - Hypotension [Not Recovered/Not Resolved]
  - Catheter site pruritus [Unknown]
  - Chest pain [Unknown]
  - Catheter site erythema [Unknown]
  - Dyspnoea [Unknown]
  - Infusion site erythema [Not Recovered/Not Resolved]
  - Infusion site inflammation [Not Recovered/Not Resolved]
  - Skin burning sensation [Unknown]
  - Complication associated with device [Recovering/Resolving]
  - Rash pruritic [Unknown]
  - Infusion site infection [Unknown]
  - Pain in jaw [Not Recovered/Not Resolved]
  - Catheter site rash [Recovering/Resolving]
